FAERS Safety Report 7113960 (Version 4)
Quarter: 2013Q3

REPORT INFORMATION
  Report Type: Spontaneous
  Country: DE (occurrence: DE)
  Receive Date: 20090914
  Receipt Date: 20130924
  Transmission Date: 20140515
  Serious: Yes (Death)
  Sender: FDA-Public Use
  Company Number: DE-ALEXION-A200900721

PATIENT
  Age: 59 Year
  Sex: Male

DRUGS (13)
  1. SOLIRIS [Suspect]
     Indication: AUTOIMMUNE HAEMOLYTIC ANAEMIA
     Dosage: 600 MG, UNK
     Route: 042
     Dates: start: 20090801, end: 200908
  2. SOLIRIS [Suspect]
     Indication: OFF LABEL USE
     Dosage: UNK
     Dates: start: 20090801
  3. BORTEZOMIB [Concomitant]
     Indication: LYMPHOMA
     Dosage: 1.3 MG/M2, UNK
     Route: 042
     Dates: start: 20090811, end: 20090818
  4. DEXAMETHAZON [Concomitant]
     Indication: LYMPHOMA
     Dosage: 40 MG/M2, UNK
     Route: 042
     Dates: start: 20090811, end: 20090818
  5. ACETYLSALICYLIC ACID [Concomitant]
     Indication: ACUTE MYOCARDIAL INFARCTION
     Dosage: 100 MG, UNK
     Route: 042
     Dates: start: 20090815, end: 20090818
  6. CLOPIDOGREL [Concomitant]
     Indication: ACUTE MYOCARDIAL INFARCTION
     Dosage: 75 MG, UNK
     Route: 042
     Dates: start: 20090815, end: 20090818
  7. HEPARIN [Concomitant]
     Indication: ACUTE MYOCARDIAL INFARCTION
     Dosage: 15000 IU, UNK
     Dates: start: 20090815, end: 20090818
  8. FENTANYL [Concomitant]
     Indication: SEDATION
     Dosage: UNK
     Route: 042
     Dates: start: 20090817, end: 20090818
  9. MIDAZOLAM [Concomitant]
     Indication: SEDATION
     Dosage: UNK
     Route: 042
     Dates: start: 20090817, end: 20090818
  10. MEROPENEM [Concomitant]
     Indication: ANTIBIOTIC THERAPY
     Dosage: 3000 MG, QD
     Route: 042
     Dates: start: 20090812, end: 20090818
  11. VANCOMYCIN [Concomitant]
     Indication: ANTIBIOTIC THERAPY
     Dosage: 1000 MG, QD
     Route: 042
     Dates: start: 20090812, end: 20090818
  12. ACICLOVIR [Concomitant]
     Indication: ANTIBIOTIC THERAPY
     Dosage: 2250 MG, QD
     Route: 042
     Dates: start: 20090812, end: 20090818
  13. CASPOFUNGIN [Concomitant]
     Indication: ANTIBIOTIC THERAPY
     Dosage: 50 MG, QD
     Route: 042
     Dates: start: 20090812, end: 20090818

REACTIONS (1)
  - Cardiac failure [Fatal]
